FAERS Safety Report 6791085-6 (Version None)
Quarter: 2010Q2

REPORT INFORMATION
  Report Type: 
  Country: None (occurrence: None)
  Receive Date: 20100624
  Receipt Date: 20100614
  Transmission Date: 20101027
  Serious: Yes (Other)
  Sender: FDA-Public Use
  Company Number: US-ELI_LILLY_AND_COMPANY-US201005002819

PATIENT
  Sex: Female
  Weight: 77.551 kg

DRUGS (19)
  1. FORTEO [Suspect]
     Indication: OSTEOPOROSIS
     Dosage: UNK, UNK
     Dates: start: 20090702
  2. FORTEO [Suspect]
     Dosage: UNK, UNK
     Dates: start: 20090101, end: 20100501
  3. OXYGEN [Concomitant]
  4. METOPROLOL [Concomitant]
     Indication: HYPERTENSION
  5. DIOVAN [Concomitant]
     Indication: HYPERTENSION
  6. FLECAINIDE ACETATE [Concomitant]
     Indication: ATRIAL FIBRILLATION
  7. GLIPIZIDE [Concomitant]
  8. ADVAIR DISKUS 100/50 [Concomitant]
  9. SINGULAIR [Concomitant]
  10. ALBUTEROL [Concomitant]
  11. XOPENEX [Concomitant]
  12. NEXIUM [Concomitant]
  13. ARICEPT [Concomitant]
  14. FOLIC ACID [Concomitant]
  15. VITAMIN D3 [Concomitant]
  16. TRAVATAN [Concomitant]
  17. OXYCODONE HCL [Concomitant]
  18. TRICOR [Concomitant]
  19. VITAMIN B-12 [Concomitant]
     Route: 030

REACTIONS (3)
  - HEPATIC CIRRHOSIS [None]
  - INJECTION SITE PAIN [None]
  - MUSCULAR WEAKNESS [None]
